FAERS Safety Report 14416570 (Version 1)
Quarter: 2018Q1

REPORT INFORMATION
  Report Type: Spontaneous
  Country: US (occurrence: US)
  Receive Date: 20180119
  Receipt Date: 20180119
  Transmission Date: 20180509
  Serious: No
  Sender: FDA-Public Use
  Company Number: None

PATIENT
  Age: 28 Year
  Sex: Female

DRUGS (1)
  1. HYDROXY CAPR INJ 250MG/ML [Suspect]
     Active Substance: HYDROXYPROGESTERONE CAPROATE

REACTIONS (3)
  - Drug dispensing error [None]
  - Maternal exposure during pregnancy [None]
  - Wrong drug administered [None]

NARRATIVE: CASE EVENT DATE: 20180118
